FAERS Safety Report 8012962-4 (Version None)
Quarter: 2011Q4

REPORT INFORMATION
  Report Type: 
  Country: None (occurrence: None)
  Receive Date: 20111229
  Receipt Date: 20111215
  Transmission Date: 20120403
  Serious: Yes (Hospitalization, Other)
  Sender: FDA-Public Use
  Company Number: GB-UCBSA-048375

PATIENT
  Sex: Male

DRUGS (2)
  1. METADATE CD [Suspect]
     Route: 048
  2. ESCITALOPRAM [Suspect]
     Indication: DEPRESSION
     Route: 048

REACTIONS (1)
  - ADRENOMEGALY [None]
